FAERS Safety Report 21925020 (Version 2)
Quarter: 2023Q1

REPORT INFORMATION
  Report Type: Spontaneous
  Country: DE (occurrence: DE)
  Receive Date: 20230130
  Receipt Date: 20230213
  Transmission Date: 20230418
  Serious: Yes (Other)
  Sender: FDA-Public Use
  Company Number: DE-CELLTRION INC.-2023DE000621

PATIENT

DRUGS (7)
  1. RITUXIMAB [Interacting]
     Active Substance: RITUXIMAB
     Indication: Rheumatoid arthritis
     Dosage: UNK(MONTHS FROM LAST RTX TO INFECTION: 6 MONTHS)
  2. RITUXIMAB [Interacting]
     Active Substance: RITUXIMAB
     Indication: Immunosuppressant drug therapy
     Dosage: UNK (INFUSION)
  3. RITUXIMAB [Interacting]
     Active Substance: RITUXIMAB
     Dosage: UNK
  4. TOZINAMERAN [Interacting]
     Active Substance: TOZINAMERAN
     Indication: COVID-19 immunisation
     Dosage: 3 DOSE
  5. METHOTREXATE [Concomitant]
     Active Substance: METHOTREXATE
     Indication: Rheumatoid arthritis
  6. METHOTREXATE [Concomitant]
     Active Substance: METHOTREXATE
     Indication: Immunosuppressant drug therapy
  7. METHOTREXATE SODIUM [Concomitant]
     Active Substance: METHOTREXATE SODIUM
     Indication: Rheumatoid arthritis
     Dosage: UNK

REACTIONS (5)
  - Breakthrough COVID-19 [Recovered/Resolved]
  - COVID-19 [Unknown]
  - Drug interaction [Unknown]
  - Vaccination failure [Unknown]
  - Off label use [Unknown]

NARRATIVE: CASE EVENT DATE: 20220114
